FAERS Safety Report 6151222-3 (Version None)
Quarter: 2009Q2

REPORT INFORMATION
  Report Type: 
  Country: None (occurrence: None)
  Receive Date: 20090410
  Receipt Date: 20090408
  Transmission Date: 20091009
  Serious: Yes (Hospitalization)
  Sender: FDA-Public Use
  Company Number: ZA-BRISTOL-MYERS SQUIBB COMPANY-14579858

PATIENT
  Sex: Female

DRUGS (1)
  1. MOLIPAXIN [Suspect]

REACTIONS (1)
  - PULMONARY EMBOLISM [None]
